FAERS Safety Report 20430834 (Version 2)
Quarter: 2022Q1

REPORT INFORMATION
  Report Type: Report from Study
  Country: PS (occurrence: None)
  Receive Date: 20220204
  Receipt Date: 20220214
  Transmission Date: 20220424
  Serious: Yes (Hospitalization, Other)
  Sender: FDA-Public Use
  Company Number: PS-Merck Healthcare KGaA-9297163

PATIENT
  Age: 42 Year
  Sex: Female

DRUGS (1)
  1. REBIF [Suspect]
     Active Substance: INTERFERON BETA-1A
     Indication: Multiple sclerosis
     Dosage: PREFILLED SYRINGE
     Dates: start: 20210809

REACTIONS (4)
  - Renal cyst [Unknown]
  - Dehydration [Unknown]
  - Multiple sclerosis [Unknown]
  - Urinary tract infection [Unknown]

NARRATIVE: CASE EVENT DATE: 20220113
